FAERS Safety Report 6747265-9 (Version None)
Quarter: 2010Q2

REPORT INFORMATION
  Report Type: 
  Country: None (occurrence: None)
  Receive Date: 20100528
  Receipt Date: 20100519
  Transmission Date: 20101027
  Serious: Yes (Hospitalization)
  Sender: FDA-Public Use
  Company Number: A0791321A

PATIENT
  Age: 52 Year
  Sex: Male
  Weight: 138.6 kg

DRUGS (1)
  1. AVANDIA [Suspect]
     Dosage: 4MG PER DAY
     Route: 048
     Dates: start: 20061101, end: 20070701

REACTIONS (3)
  - ARTERIOSCLEROSIS [None]
  - GRAFT DYSFUNCTION [None]
  - MYOCARDIAL INFARCTION [None]
